FAERS Safety Report 13457709 (Version 1)
Quarter: 2017Q2

REPORT INFORMATION
  Report Type: Spontaneous
  Country: GB (occurrence: GB)
  Receive Date: 20170419
  Receipt Date: 20170419
  Transmission Date: 20170830
  Serious: Yes (Hospitalization, Disabling)
  Sender: FDA-Public Use
  Company Number: GB-PFIZER INC-2017167902

PATIENT
  Age: 76 Year
  Sex: Male

DRUGS (18)
  1. DEXAMETHASONE ACETATE [Concomitant]
     Active Substance: DEXAMETHASONE ACETATE
  2. FENTANYL. [Concomitant]
     Active Substance: FENTANYL
  3. OXYCODONE [Concomitant]
     Active Substance: OXYCODONE
  4. PROPOFOL. [Concomitant]
     Active Substance: PROPOFOL
  5. TAMSULOSIN [Concomitant]
     Active Substance: TAMSULOSIN
  6. TEICOPLANIN [Concomitant]
     Active Substance: TEICOPLANIN
  7. ATRACURIUM [Concomitant]
     Active Substance: ATRACURIUM
  8. RANITIDINE HYDROCHLORIDE. [Concomitant]
     Active Substance: RANITIDINE HYDROCHLORIDE
  9. ATENOLOL. [Concomitant]
     Active Substance: ATENOLOL
  10. TRANEXAMIC ACID. [Suspect]
     Active Substance: TRANEXAMIC ACID
     Indication: HAEMORRHAGE PROPHYLAXIS
     Dosage: 1 G, (700 MG PER HOUR)
     Route: 040
     Dates: start: 20170324, end: 20170324
  11. FOLIC ACID. [Concomitant]
     Active Substance: FOLIC ACID
  12. BENDROFLUMETHIAZIDE [Concomitant]
     Active Substance: BENDROFLUMETHIAZIDE
  13. CETIRIZINE HYDROCHLORIDE. [Concomitant]
     Active Substance: CETIRIZINE HYDROCHLORIDE
  14. FINASTERIDE. [Concomitant]
     Active Substance: FINASTERIDE
  15. GENTAMICIN. [Concomitant]
     Active Substance: GENTAMICIN
  16. METARAMINOL [Concomitant]
     Active Substance: METARAMINOL
  17. PARACETAMOL [Concomitant]
     Active Substance: ACETAMINOPHEN
  18. REMIFENTANIL [Concomitant]
     Active Substance: REMIFENTANIL

REACTIONS (1)
  - Status epilepticus [Recovered/Resolved with Sequelae]

NARRATIVE: CASE EVENT DATE: 20170324
